FAERS Safety Report 20720954 (Version 1)
Quarter: 2022Q2

REPORT INFORMATION
  Report Type: Spontaneous
  Country: JP (occurrence: JP)
  Receive Date: 20220418
  Receipt Date: 20220418
  Transmission Date: 20220721
  Serious: Yes (Death, Hospitalization, Other)
  Sender: FDA-Public Use
  Company Number: JP-BRISTOL-MYERS SQUIBB COMPANY-BMS-2019-063725

PATIENT
  Age: 52 Year
  Sex: Female

DRUGS (3)
  1. OPDIVO [Suspect]
     Active Substance: NIVOLUMAB
     Indication: Gastric cancer
     Dosage: 240 MILLIGRAM, Q2WK
     Route: 041
     Dates: start: 20190412
  2. AMINO ACIDS\DEXTROSE\ELECTROLYTES NOS\MINERALS\VITAMINS [Concomitant]
     Active Substance: AMINO ACIDS\DEXTROSE\ELECTROLYTES NOS\MINERALS\VITAMINS
     Indication: Nutritional supplementation
     Dosage: 1500 ML, EVERYDAY
     Route: 065
     Dates: start: 20190411
  3. FENTANYL [Concomitant]
     Active Substance: FENTANYL
     Indication: Cancer pain
     Dosage: 720 UG, EVERYDAY
     Route: 065
     Dates: start: 20190506

REACTIONS (2)
  - Device related infection [Recovered/Resolved]
  - Malignant neoplasm progression [Fatal]

NARRATIVE: CASE EVENT DATE: 20190608
